FAERS Safety Report 7981654-X (Version None)
Quarter: 2011Q4

REPORT INFORMATION
  Report Type: 
  Country: None (occurrence: None)
  Receive Date: 20111215
  Receipt Date: 20111208
  Transmission Date: 20120403
  Serious: No
  Sender: FDA-Public Use
  Company Number: US-B.I. PHARMACEUTICALS,INC./RIDGEFIELD-2011-BP-07126BP

PATIENT
  Age: 77 Year
  Sex: Female

DRUGS (10)
  1. PRADAXA [Suspect]
     Indication: ATRIAL FIBRILLATION
     Dosage: 300 MG
     Route: 048
     Dates: start: 20110303, end: 20110801
  2. HYDROCHLOROTHIAZIDE [Concomitant]
  3. FOLIC ACID [Concomitant]
  4. METHOTREXATE [Concomitant]
  5. PREDNISONE [Concomitant]
  6. PREMARIN [Concomitant]
  7. ATENOLOL [Concomitant]
  8. OXYBUTYNIN [Concomitant]
  9. SIMVASTATIN [Concomitant]
  10. DIOVAN [Concomitant]

REACTIONS (2)
  - ANORECTAL DISCOMFORT [None]
  - DIARRHOEA [None]
